FAERS Safety Report 20685876 (Version 1)
Quarter: 2022Q2

REPORT INFORMATION
  Report Type: Spontaneous
  Country: US (occurrence: US)
  Receive Date: 20220407
  Receipt Date: 20220407
  Transmission Date: 20220721
  Serious: No
  Sender: FDA-Public Use
  Company Number: US-GILEAD-2022-0576660

PATIENT
  Age: 58 Year
  Sex: Male

DRUGS (8)
  1. VEMLIDY [Suspect]
     Active Substance: TENOFOVIR ALAFENAMIDE FUMARATE
     Indication: Chronic hepatitis B
     Dosage: 25 MG, QD
     Route: 048
     Dates: end: 20220316
  2. ALAWAY [Concomitant]
     Active Substance: KETOTIFEN FUMARATE
  3. ENTECAVIR [Concomitant]
     Active Substance: ENTECAVIR
  4. FLONASE [Concomitant]
     Active Substance: FLUTICASONE PROPIONATE
  5. GINKGO [Concomitant]
     Active Substance: GINKGO
  6. LORATADINE [Concomitant]
     Active Substance: LORATADINE
  7. FISH OIL [Concomitant]
     Active Substance: FISH OIL
  8. FLOMAX [Concomitant]
     Active Substance: TAMSULOSIN HYDROCHLORIDE

REACTIONS (1)
  - Product use issue [Unknown]

NARRATIVE: CASE EVENT DATE: 20220317
